FAERS Safety Report 14011646 (Version 2)
Quarter: 2017Q4

REPORT INFORMATION
  Report Type: Report from Study
  Country: None (occurrence: LT)
  Receive Date: 20170926
  Receipt Date: 20171101
  Transmission Date: 20180321
  Serious: Yes (Hospitalization)
  Sender: FDA-Public Use
  Company Number: LT-ABBVIE-17K-234-2108700-00

PATIENT
  Age: 48 Year
  Sex: Female

DRUGS (1)
  1. HUMIRA [Suspect]
     Active Substance: ADALIMUMAB
     Indication: CROHN^S DISEASE
     Route: 058
     Dates: start: 201402, end: 201709

REACTIONS (7)
  - Blood creatinine increased [Unknown]
  - Stoma site oedema [Recovering/Resolving]
  - Stoma site pain [Recovering/Resolving]
  - Abdominal wall cyst [Recovering/Resolving]
  - Cyst [Unknown]
  - Abdominal abscess [Recovering/Resolving]
  - Stoma site erythema [Recovering/Resolving]

NARRATIVE: CASE EVENT DATE: 201708
